FAERS Safety Report 8022643-9 (Version None)
Quarter: 2012Q1

REPORT INFORMATION
  Report Type: 
  Country: None (occurrence: None)
  Receive Date: 20120104
  Receipt Date: 20111226
  Transmission Date: 20120608
  Serious: Yes (Other)
  Sender: FDA-Public Use
  Company Number: US-GLAXOSMITHKLINE-B0772716A

PATIENT
  Age: 77 Year
  Sex: Female

DRUGS (2)
  1. ENOXAPARIN [Concomitant]
     Route: 065
  2. FONDAPARINUX SODIUM [Suspect]
     Route: 065

REACTIONS (5)
  - PAIN IN EXTREMITY [None]
  - COMPARTMENT SYNDROME [None]
  - OEDEMA PERIPHERAL [None]
  - HAEMATOMA [None]
  - ERYTHEMA [None]
